FAERS Safety Report 8178346-3 (Version None)
Quarter: 2012Q1

REPORT INFORMATION
  Report Type: 
  Country: None (occurrence: None)
  Receive Date: 20120126
  Receipt Date: 20111110
  Transmission Date: 20120608
  Serious: No
  Sender: FDA-Public Use
  Company Number: PHEH2011US03758

PATIENT
  Age: 9 Year
  Sex: Male

DRUGS (1)
  1. AFINITOR [Suspect]
     Indication: ASTROCYTOMA
     Dosage: 5 MG, ORAL : 2.5 MG, ORAL
     Route: 048
     Dates: start: 20110806

REACTIONS (9)
  - SLEEP DISORDER [None]
  - BLOOD CHOLESTEROL INCREASED [None]
  - WEIGHT INCREASED [None]
  - INCREASED APPETITE [None]
  - CONSTIPATION [None]
  - CRYING [None]
  - ABDOMINAL PAIN UPPER [None]
  - HEADACHE [None]
  - ANXIETY [None]
